FAERS Safety Report 4459847-8 (Version None)
Quarter: 2004Q3

REPORT INFORMATION
  Report Type: 
  Country: None (occurrence: None)
  Receive Date: 20040928
  Receipt Date: 20040224
  Transmission Date: 20050211
  Serious: No
  Sender: FDA-Public Use
  Company Number: US-BRISTOL-MYERS SQUIBB COMPANY-12516662

PATIENT
  Age: 6 Year
  Sex: Male
  Weight: 20 kg

DRUGS (4)
  1. TRIMOX [Suspect]
     Indication: EAR INFECTION
     Dosage: DOSAGE FORM: TEASPOON
     Route: 048
     Dates: start: 20040218
  2. LANTUS [Concomitant]
  3. HUMALOG [Concomitant]
  4. NPH INSULIN [Concomitant]

REACTIONS (1)
  - BLOOD GLUCOSE INCREASED [None]
